FAERS Safety Report 5150480-1 (Version None)
Quarter: 2006Q4

REPORT INFORMATION
  Report Type: 
  Country: None (occurrence: None)
  Receive Date: 20061114
  Receipt Date: 20060404
  Transmission Date: 20070319
  Serious: Yes (Hospitalization, Other)
  Sender: FDA-Public Use
  Company Number: JP-AVENTIS-200611132JP

PATIENT
  Age: 64 Year
  Sex: Male
  Weight: 62 kg

DRUGS (3)
  1. TAXOTERE [Suspect]
     Indication: LARYNGEAL CANCER
     Route: 041
     Dates: start: 20041214
  2. TAXOTERE [Suspect]
     Route: 041
     Dates: end: 20050111
  3. RADIOTHERAPY [Concomitant]
     Indication: LARYNGEAL CANCER
     Dosage: DOSE: 64 GY/TOTAL
     Dates: start: 20041208, end: 20050204

REACTIONS (4)
  - CHONDROPATHY [None]
  - LARYNGEAL OEDEMA [None]
  - NECROSIS [None]
  - OSTEONECROSIS [None]
